FAERS Safety Report 12690237 (Version 1)
Quarter: 2016Q3

REPORT INFORMATION
  Report Type: Spontaneous
  Country: FR (occurrence: FR)
  Receive Date: 20160826
  Receipt Date: 20160826
  Transmission Date: 20161109
  Serious: Yes (Hospitalization)
  Sender: FDA-Public Use
  Company Number: FR-BAYER-2016-160460

PATIENT
  Age: 61 Year
  Sex: Male

DRUGS (1)
  1. IZILOX [Suspect]
     Active Substance: MOXIFLOXACIN HYDROCHLORIDE
     Dosage: 1 DF, ONCE
     Route: 048
     Dates: start: 20160723, end: 20160724

REACTIONS (3)
  - Hypoxia [Recovered/Resolved]
  - Tachypnoea [Recovered/Resolved]
  - Status epilepticus [Recovered/Resolved]

NARRATIVE: CASE EVENT DATE: 20160724
